FAERS Safety Report 8384755-X (Version None)
Quarter: 2012Q2

REPORT INFORMATION
  Report Type: 
  Country: None (occurrence: None)
  Receive Date: 20120524
  Receipt Date: 20110915
  Transmission Date: 20120825
  Serious: Yes (Hospitalization, Other)
  Sender: FDA-Public Use
  Company Number: US-ROCHE-795718

PATIENT
  Sex: Male
  Weight: 70.3 kg

DRUGS (24)
  1. EPINEPHRINE [Concomitant]
     Indication: RHEUMATOID ARTHRITIS
     Dosage: USED AS DIRECTED
     Route: 042
  2. ORENCIA [Concomitant]
     Route: 042
  3. FAMOTIDINE [Concomitant]
     Indication: RHEUMATOID ARTHRITIS
     Dosage: USED AS DIRECTED.
     Route: 042
  4. FISH OIL [Concomitant]
     Route: 048
  5. PEPCID [Concomitant]
     Dosage: AS NEEDED
     Route: 048
  6. ORENCIA [Concomitant]
     Indication: RHEUMATOID ARTHRITIS
     Route: 042
  7. MULTIVITAMIN NOS [Concomitant]
     Dosage: 1 TABLET
     Route: 048
  8. SODIUM CHLORIDE [Concomitant]
     Indication: RHEUMATOID ARTHRITIS
     Route: 042
  9. ACTEMRA [Suspect]
     Indication: RHEUMATOID ARTHRITIS
     Route: 042
  10. ACTEMRA [Suspect]
     Route: 042
  11. ACTEMRA [Suspect]
     Route: 042
  12. VITAMIN D [Concomitant]
     Route: 048
  13. ENALAPRIL MALEATE [Concomitant]
     Route: 048
  14. METHOTREXATE SODIUM [Concomitant]
     Dosage: USED AS DIRECTED
     Route: 048
  15. IBUPROFEN [Concomitant]
     Dosage: AS NEEDED
     Route: 048
  16. VERAPAMIL [Concomitant]
     Route: 048
  17. SODIUM CHLORIDE [Concomitant]
     Route: 042
  18. MUCINEX [Concomitant]
     Dosage: AS DIRECTED
     Route: 048
  19. ACTEMRA [Suspect]
     Route: 042
  20. CALCIUM CARBONATE [Concomitant]
     Route: 048
  21. FOLIC ACID [Concomitant]
     Route: 048
  22. HYDROCHLOROTHIAZIDE [Concomitant]
     Dosage: 1 OR 2 TABLETS
     Route: 048
  23. SODIUM CHLORIDE [Concomitant]
     Route: 042
  24. PRAVASTATIN [Concomitant]
     Route: 048

REACTIONS (4)
  - PAIN [None]
  - HYPERAESTHESIA [None]
  - ABDOMINAL DISCOMFORT [None]
  - GASTROINTESTINAL PAIN [None]
